FAERS Safety Report 4395607-4 (Version None)
Quarter: 2004Q3

REPORT INFORMATION
  Report Type: 
  Country: None (occurrence: None)
  Receive Date: 20040712
  Receipt Date: 20040712
  Transmission Date: 20050211
  Serious: Yes (Other)
  Sender: FDA-Public Use
  Company Number: None

PATIENT
  Age: 80 Year
  Sex: Male
  Weight: 118.8 kg

DRUGS (7)
  1. TERAZOSIN HCL [Suspect]
  2. CITALOPRAM HYDROBROMIDE [Concomitant]
  3. GATIFLOXACIN [Concomitant]
  4. BUSPIRONE HCL [Concomitant]
  5. CITALOPRAM HYDROBROMIDE [Concomitant]
  6. FUROSEMIDE [Concomitant]
  7. CELECOXIB [Concomitant]

REACTIONS (2)
  - DIZZINESS [None]
  - HEADACHE [None]
